FAERS Safety Report 7580355-X (Version None)
Quarter: 2011Q2

REPORT INFORMATION
  Report Type: 
  Country: None (occurrence: None)
  Receive Date: 20110629
  Receipt Date: 20110620
  Transmission Date: 20111010
  Serious: Yes (Hospitalization, Other)
  Sender: FDA-Public Use
  Company Number: RU-ROCHE-784518

PATIENT
  Sex: Female
  Weight: 50 kg

DRUGS (9)
  1. REBETOL [Concomitant]
     Route: 048
  2. REBETOL [Concomitant]
     Route: 048
     Dates: start: 20110401
  3. PEGASYS [Suspect]
     Indication: HEPATITIS C
     Route: 058
     Dates: start: 20101001
  4. METHYLURACIL [Concomitant]
     Indication: HEPATITIS C
     Route: 048
     Dates: start: 20101201
  5. REBETOL [Concomitant]
     Indication: HEPATITIS C
     Route: 048
     Dates: start: 20101001
  6. NEUPOGEN [Concomitant]
     Indication: LEUKOPENIA
     Route: 058
     Dates: start: 20101130
  7. INOSINE [Concomitant]
     Indication: HEPATITIS C
     Dates: start: 20110101, end: 20110201
  8. PEGASYS [Suspect]
     Dosage: DOSE REDUCED
     Route: 058
  9. BISOPROLOL [Concomitant]
     Route: 048
     Dates: start: 20110401

REACTIONS (14)
  - ASPARTATE AMINOTRANSFERASE INCREASED [None]
  - ARTHRALGIA [None]
  - SINUS TACHYCARDIA [None]
  - NAUSEA [None]
  - PERIODONTITIS [None]
  - CELL DEATH [None]
  - ALANINE AMINOTRANSFERASE INCREASED [None]
  - LEUKOPENIA [None]
  - NEUTROPENIA [None]
  - ASTHENIA [None]
  - PYREXIA [None]
  - GINGIVAL BLEEDING [None]
  - RED BLOOD CELL SEDIMENTATION RATE INCREASED [None]
  - COUGH [None]
